FAERS Safety Report 8851036 (Version 1)
Quarter: 2012Q4

REPORT INFORMATION
  Report Type: Report from Study
  Country: US (occurrence: US)
  Receive Date: 20121019
  Receipt Date: 20121019
  Transmission Date: 20130627
  Serious: Yes (Death, Hospitalization)
  Sender: FDA-Public Use
  Company Number: US-JNJFOC-NSADSS2002000609

PATIENT
  Age: 60 Year
  Sex: Female
  Weight: 58.97 kg

DRUGS (10)
  1. CISAPRIDE [Suspect]
     Route: 048
  2. CISAPRIDE [Suspect]
     Indication: DIABETIC GASTROPARESIS
     Route: 048
     Dates: start: 20010208, end: 20011031
  3. INSULIN NPH [Concomitant]
     Indication: DIABETES MELLITUS
     Dosage: 8N in AM and 6N in PM
  4. DULCOLAX [Concomitant]
     Indication: CONSTIPATION
     Route: 048
  5. NASACORT [Concomitant]
     Indication: RHINITIS ALLERGIC
     Dosage: 2 sprays each nostril.
     Route: 045
  6. PRILOSEC [Concomitant]
     Indication: GASTROOESOPHAGEAL REFLUX DISEASE
     Route: 048
  7. PREMPRO [Concomitant]
     Indication: HORMONE REPLACEMENT THERAPY
     Route: 048
  8. DARVOCET N100 [Concomitant]
     Indication: DIABETIC NEUROPATHY
     Route: 048
  9. LACTULOSE SYRUP [Concomitant]
     Indication: CONSTIPATION
     Route: 048
  10. ISOPHANE INSULIN [Concomitant]
     Indication: DIABETES MELLITUS
     Dosage: 8R in AM and 2R in PM

REACTIONS (5)
  - Condition aggravated [Not Recovered/Not Resolved]
  - Drug ineffective [Recovered/Resolved]
  - Sepsis [Fatal]
  - Jaundice cholestatic [Fatal]
  - Diabetic gastropathy [Fatal]
